FAERS Safety Report 25247215 (Version 2)
Quarter: 2025Q2

REPORT INFORMATION
  Report Type: Spontaneous
  Country: US (occurrence: US)
  Receive Date: 20250428
  Receipt Date: 20250509
  Transmission Date: 20250717
  Serious: Yes (Life-Threatening, Hospitalization)
  Sender: TEVA
  Company Number: US-TEVA-VS-3325008

PATIENT
  Age: 18 Year
  Sex: Female

DRUGS (2)
  1. IBUPROFEN [Suspect]
     Active Substance: IBUPROFEN
     Indication: Intentional overdose
     Route: 048
  2. IRON [Suspect]
     Active Substance: IRON
     Indication: Intentional overdose
     Route: 048

REACTIONS (5)
  - Acute hepatic failure [Recovered/Resolved]
  - Gastrointestinal disorder [Recovered/Resolved]
  - Intentional overdose [Recovered/Resolved]
  - Necrosis [Recovered/Resolved]
  - Generalised tonic-clonic seizure [Recovered/Resolved]
